FAERS Safety Report 5781885-3 (Version None)
Quarter: 2008Q2

REPORT INFORMATION
  Report Type: 
  Country: None (occurrence: None)
  Receive Date: 20080623
  Receipt Date: 20080618
  Transmission Date: 20081010
  Serious: Yes (Hospitalization, Other)
  Sender: FDA-Public Use
  Company Number: A0723187A

PATIENT
  Age: 65 Year
  Sex: Male

DRUGS (2)
  1. AVODART [Suspect]
     Indication: BENIGN PROSTATIC HYPERPLASIA
     Dosage: .5MG PER DAY
     Route: 048
     Dates: start: 20070401, end: 20080301
  2. FLOMAX [Concomitant]

REACTIONS (3)
  - BREAST ENLARGEMENT [None]
  - GYNAECOMASTIA [None]
  - LOCAL SWELLING [None]
